FAERS Safety Report 5779561-6 (Version None)
Quarter: 2008Q2

REPORT INFORMATION
  Report Type: 
  Country: None (occurrence: None)
  Receive Date: 20080617
  Receipt Date: 20080610
  Transmission Date: 20081010
  Serious: Yes (Other)
  Sender: FDA-Public Use
  Company Number: MSTR-NO-0805S-0019

PATIENT
  Age: 85 Year
  Sex: Male
  Weight: 41 kg

DRUGS (6)
  1. METASTRON [Suspect]
     Indication: METASTATIC PAIN
     Dosage: 82 MBQ, SINGLE DOSE, I.V.
     Route: 042
     Dates: start: 20080417, end: 20080417
  2. ZOMETA [Concomitant]
  3. LOXOPROFEN SODIUM [Concomitant]
  4. DICLOFENAC SODIUM [Concomitant]
  5. HYDROCHLORIDE [Concomitant]
  6. GOSERELIN ACETATE [Concomitant]

REACTIONS (5)
  - NO THERAPEUTIC RESPONSE [None]
  - PLATELET COUNT DECREASED [None]
  - PROTEIN TOTAL DECREASED [None]
  - PULMONARY OEDEMA [None]
  - RESPIRATORY DISTRESS [None]
